FAERS Safety Report 8050312-8 (Version None)
Quarter: 2012Q1

REPORT INFORMATION
  Report Type: 
  Country: None (occurrence: None)
  Receive Date: 20120111
  Receipt Date: 20120106
  Transmission Date: 20120608
  Serious: Yes (Hospitalization, Other)
  Sender: FDA-Public Use
  Company Number: 2011SP026441

PATIENT
  Age: 30 Year
  Sex: Female
  Weight: 110.2241 kg

DRUGS (3)
  1. NUVARING [Suspect]
     Indication: CONTRACEPTION
     Dates: start: 20060601, end: 20090626
  2. NUVARING [Suspect]
     Indication: CONTRACEPTION
     Dates: start: 20080703, end: 20090626
  3. NUVARING [Suspect]
     Indication: CONTRACEPTION
     Dates: start: 20040501, end: 20070910

REACTIONS (41)
  - PULMONARY EMBOLISM [None]
  - BLOOD CHOLESTEROL INCREASED [None]
  - PREGNANCY [None]
  - BREAST PAIN [None]
  - LIGAMENT SPRAIN [None]
  - COSTOCHONDRITIS [None]
  - IRRITABLE BOWEL SYNDROME [None]
  - BREAST TENDERNESS [None]
  - THIRST [None]
  - SPORTS INJURY [None]
  - PLANTAR FASCIITIS [None]
  - PHLEBITIS SUPERFICIAL [None]
  - C-REACTIVE PROTEIN INCREASED [None]
  - HEADACHE [None]
  - GASTROOESOPHAGEAL REFLUX DISEASE [None]
  - METRORRHAGIA [None]
  - INTERVERTEBRAL DISC DISORDER [None]
  - ARTHRITIS [None]
  - AMNESIA [None]
  - MUSCULAR WEAKNESS [None]
  - HYPOAESTHESIA [None]
  - WEIGHT DECREASED [None]
  - FIBROADENOMA OF BREAST [None]
  - PULMONARY OEDEMA [None]
  - ADNEXA UTERI PAIN [None]
  - ANXIETY [None]
  - HYPERCOAGULATION [None]
  - SPINAL OSTEOARTHRITIS [None]
  - DEEP VEIN THROMBOSIS [None]
  - FIBROMYALGIA [None]
  - SURGERY [None]
  - VULVOVAGINAL DRYNESS [None]
  - DEPRESSION [None]
  - INTERVERTEBRAL DISC DEGENERATION [None]
  - VERTEBRAL FORAMINAL STENOSIS [None]
  - WEIGHT INCREASED [None]
  - GESTATIONAL HYPERTENSION [None]
  - ANGINA PECTORIS [None]
  - SINUSITIS [None]
  - NIGHT SWEATS [None]
  - GASTRITIS EROSIVE [None]
